FAERS Safety Report 13542360 (Version 1)
Quarter: 2017Q2

REPORT INFORMATION
  Report Type: Spontaneous
  Country: US (occurrence: US)
  Receive Date: 20170512
  Receipt Date: 20170512
  Transmission Date: 20170830
  Serious: No
  Sender: FDA-Public Use
  Company Number: US-ROCHE-785268

PATIENT
  Sex: Male

DRUGS (2)
  1. LUCENTIS [Concomitant]
     Active Substance: RANIBIZUMAB
     Dosage: FORM: INJECTION
     Route: 050
  2. AVASTIN [Suspect]
     Active Substance: BEVACIZUMAB
     Indication: PRODUCT USED FOR UNKNOWN INDICATION
     Route: 065

REACTIONS (1)
  - Visual impairment [Unknown]
